FAERS Safety Report 7393283-X (Version None)
Quarter: 2011Q2

REPORT INFORMATION
  Report Type: 
  Country: None (occurrence: None)
  Receive Date: 20110405
  Receipt Date: 20080915
  Transmission Date: 20111010
  Serious: No
  Sender: FDA-Public Use
  Company Number: 2008BI024545

PATIENT
  Age: 35 Year
  Sex: Female

DRUGS (1)
  1. TYSABRI [Suspect]
     Indication: MULTIPLE SCLEROSIS
     Route: 042
     Dates: start: 20080820

REACTIONS (9)
  - NAUSEA [None]
  - MULTIPLE SCLEROSIS [None]
  - UPPER RESPIRATORY TRACT INFECTION [None]
  - HYPOAESTHESIA [None]
  - DECREASED APPETITE [None]
  - VOMITING [None]
  - BRONCHITIS [None]
  - INCREASED APPETITE [None]
  - SINUSITIS [None]
